FAERS Safety Report 7546445-2 (Version None)
Quarter: 2011Q2

REPORT INFORMATION
  Report Type: 
  Country: None (occurrence: None)
  Receive Date: 20110607
  Receipt Date: 20110523
  Transmission Date: 20111010
  Serious: Yes (Life-Threatening, Hospitalization, Other)
  Sender: FDA-Public Use
  Company Number: 2011MA006344

PATIENT
  Age: 49 Year
  Sex: Female

DRUGS (6)
  1. METHYLPREDNISOLONE [Concomitant]
  2. CARBOPLATIN [Concomitant]
  3. DEXCHLORPHENIRAMINE MALEATE [Concomitant]
  4. GRANISETRON [Concomitant]
  5. RANITIDINE [Concomitant]
  6. PACLITAXEL [Suspect]
     Indication: ADENOCARCINOMA
     Dosage: 6MG/ML/0.0001-1MG/ML; 1X; 1D

REACTIONS (7)
  - DYSPNOEA [None]
  - HYPOTENSION [None]
  - DIZZINESS [None]
  - OXYGEN SATURATION DECREASED [None]
  - FLUSHING [None]
  - FALL [None]
  - TYPE I HYPERSENSITIVITY [None]
